FAERS Safety Report 5654190-3 (Version None)
Quarter: 2008Q1

REPORT INFORMATION
  Report Type: 
  Country: None (occurrence: None)
  Receive Date: 20080306
  Receipt Date: 20080211
  Transmission Date: 20080703
  Serious: No
  Sender: FDA-Public Use
  Company Number: US-BOEHRINGER INGELHEIM GMBH, GERMANY-2008-BP-02074BP

PATIENT
  Sex: Female

DRUGS (6)
  1. COMBIVENT [Suspect]
     Indication: ASTHMA
     Route: 055
     Dates: start: 19990101
  2. COMBIVENT [Suspect]
     Indication: BRONCHOSPASM
  3. LANTUS [Concomitant]
     Indication: TYPE 1 DIABETES MELLITUS
  4. HUMALOG [Concomitant]
     Indication: TYPE 1 DIABETES MELLITUS
  5. SYNTHROID [Concomitant]
     Indication: HYPOTHYROIDISM
  6. ALTACE [Concomitant]
     Indication: HYPERTENSION

REACTIONS (2)
  - DRUG INEFFECTIVE [None]
  - DYSPNOEA [None]
